FAERS Safety Report 14251798 (Version 1)
Quarter: 2017Q4

REPORT INFORMATION
  Report Type: Spontaneous
  Country: CN (occurrence: CN)
  Receive Date: 20171205
  Receipt Date: 20171205
  Transmission Date: 20180321
  Serious: Yes (Hospitalization)
  Sender: FDA-Public Use
  Company Number: CN-ACELLA PHARMACEUTICALS, LLC-2036730

PATIENT
  Age: 53 Year
  Sex: Male

DRUGS (1)
  1. PHENYTOIN. [Suspect]
     Active Substance: PHENYTOIN
     Indication: EPILEPSY

REACTIONS (3)
  - Memory impairment [None]
  - Central nervous system lesion [None]
  - Somnolence [None]
